FAERS Safety Report 7293728-X (Version None)
Quarter: 2011Q1

REPORT INFORMATION
  Report Type: 
  Country: None (occurrence: None)
  Receive Date: 20110215
  Receipt Date: 20110131
  Transmission Date: 20110831
  Serious: Yes (Death, Other)
  Sender: FDA-Public Use
  Company Number: DE-CUBIST-2011S1000065

PATIENT

DRUGS (1)
  1. CUBICIN [Suspect]
     Indication: ENTEROCOCCAL INFECTION

REACTIONS (4)
  - DEATH [None]
  - PSEUDOMONAS INFECTION [None]
  - DRUG INEFFECTIVE [None]
  - PATHOGEN RESISTANCE [None]
